FAERS Safety Report 17299407 (Version 1)
Quarter: 2020Q1

REPORT INFORMATION
  Report Type: Report from Study
  Country: US (occurrence: US)
  Receive Date: 20200121
  Receipt Date: 20200121
  Transmission Date: 20200409
  Serious: Yes (Death, Hospitalization, Other)
  Sender: FDA-Public Use
  Company Number: US-BRISTOL-MYERS SQUIBB COMPANY-BMS-2019-125245

PATIENT
  Age: 36 Year
  Sex: Female

DRUGS (2)
  1. NIVOLUMAB [Suspect]
     Active Substance: NIVOLUMAB
     Indication: ANGIOSARCOMA
     Dosage: 3 MILLIGRAM/KILOGRAM, Q3WK
     Route: 042
     Dates: start: 20191108, end: 20191220
  2. IPILIMUMAB [Suspect]
     Active Substance: IPILIMUMAB
     Indication: ANGIOSARCOMA
     Dosage: 1 MILLIGRAM/KILOGRAM, Q3WK (70 MG)
     Route: 042
     Dates: start: 20191108, end: 20191220

REACTIONS (5)
  - Weight decreased [Unknown]
  - Vomiting [Unknown]
  - Nausea [Unknown]
  - Malignant neoplasm progression [Fatal]
  - Decreased appetite [Fatal]

NARRATIVE: CASE EVENT DATE: 20191223
